FAERS Safety Report 18049683 (Version 2)
Quarter: 2020Q3

REPORT INFORMATION
  Report Type: Spontaneous
  Country: US (occurrence: US)
  Receive Date: 20200721
  Receipt Date: 20200821
  Transmission Date: 20201103
  Serious: No
  Sender: FDA-Public Use
  Company Number: US-ASTRAZENECA-2020SE90007

PATIENT
  Sex: Female
  Weight: 120.2 kg

DRUGS (4)
  1. BYDUREON [Suspect]
     Active Substance: EXENATIDE
     Indication: TYPE 2 DIABETES MELLITUS
     Route: 058
  2. JARDIANCE [Concomitant]
     Active Substance: EMPAGLIFLOZIN
  3. HUMULIN INSULIN 70/30 [Concomitant]
     Dosage: 76USP UNITS TWO TIMES A DAY
  4. METFORMIN [Concomitant]
     Active Substance: METFORMIN HYDROCHLORIDE

REACTIONS (5)
  - Visual impairment [Unknown]
  - Device leakage [Unknown]
  - Gout [Recovering/Resolving]
  - Wrong technique in device usage process [Unknown]
  - Vision blurred [Unknown]
